FAERS Safety Report 17306164 (Version 1)
Quarter: 2020Q1

REPORT INFORMATION
  Report Type: Spontaneous
  Country: GB (occurrence: GB)
  Receive Date: 20200123
  Receipt Date: 20200123
  Transmission Date: 20200409
  Serious: Yes (Other)
  Sender: FDA-Public Use
  Company Number: GB-MYLANLABS-2020M1006563

PATIENT
  Age: 59 Year
  Sex: Male
  Weight: 83 kg

DRUGS (10)
  1. LANSOPRAZOLE. [Concomitant]
     Active Substance: LANSOPRAZOLE
     Dosage: 1 DOSAGE FORM
     Dates: start: 20181120
  2. SUMATRIPTAN. [Concomitant]
     Active Substance: SUMATRIPTAN
     Dosage: 1 DOSAGE FORM
     Dates: start: 20190314
  3. ATENOLOL. [Concomitant]
     Active Substance: ATENOLOL
     Dosage: 1 DOSAGE FORM
     Dates: start: 20181009
  4. QUETIAPINE. [Concomitant]
     Active Substance: QUETIAPINE
     Dosage: 1 DOSAGE FORM
     Dates: start: 20181116
  5. HYPROMELLOSE [Concomitant]
     Active Substance: HYPROMELLOSES
     Indication: DRY EYE
     Dosage: UNK UNK, PRN (AS NECESSARY)
     Dates: start: 20180207
  6. BECLOMETASONE [Concomitant]
     Active Substance: BECLOMETHASONE DIPROPIONATE
     Dosage: 1 PUFF EACH NOSTRIL TO BE TAKEN 3XD)
     Dates: start: 20180501, end: 20190211
  7. LISINOPRIL. [Suspect]
     Active Substance: LISINOPRIL
     Indication: PRODUCT USED FOR UNKNOWN INDICATION
     Dosage: 2.5 MILLIGRAM
     Dates: start: 20190314
  8. ASPIRIN                            /00002701/ [Concomitant]
     Active Substance: ASPIRIN
     Dosage: 1 DOSAGE FORM
     Dates: start: 20181009
  9. ATORVASTATIN [Concomitant]
     Active Substance: ATORVASTATIN
     Dosage: 1 DOSAGE FORM
     Dates: start: 20181009
  10. GLYCERYL TRINITRATE [Concomitant]
     Active Substance: NITROGLYCERIN
     Dosage: 1 DOSAGE FORM, PRN (AS NEEDED)
     Dates: start: 20170830

REACTIONS (1)
  - Gastrointestinal tract irritation [Recovered/Resolved]

NARRATIVE: CASE EVENT DATE: 20190314
